FAERS Safety Report 6032208-6 (Version None)
Quarter: 2009Q1

REPORT INFORMATION
  Report Type: 
  Country: None (occurrence: None)
  Receive Date: 20090108
  Receipt Date: 20081224
  Transmission Date: 20090719
  Serious: No
  Sender: FDA-Public Use
  Company Number: US-B.I. PHARMACEUTICALS,INC./RIDGEFIELD-2008-BP-17757BP

PATIENT
  Age: 36 Year
  Sex: Male

DRUGS (3)
  1. MOBIC [Suspect]
     Indication: INFLAMMATION
     Dosage: 15MG
     Route: 048
     Dates: start: 20081121, end: 20081121
  2. MOBIC [Suspect]
     Indication: ARTHRITIS
  3. PERCOCET [Concomitant]

REACTIONS (5)
  - FEELING ABNORMAL [None]
  - HANGOVER [None]
  - HEADACHE [None]
  - MUSCULOSKELETAL DISCOMFORT [None]
  - MUSCULOSKELETAL STIFFNESS [None]
